FAERS Safety Report 23508291 (Version 1)
Quarter: 2024Q1

REPORT INFORMATION
  Report Type: Spontaneous
  Country: CN (occurrence: None)
  Receive Date: 20240209
  Receipt Date: 20240209
  Transmission Date: 20240410
  Serious: Yes (Other)
  Sender: FDA-Public Use
  Company Number: 2024A024689

PATIENT
  Sex: Male

DRUGS (1)
  1. SYMBICORT [Suspect]
     Active Substance: BUDESONIDE\FORMOTEROL FUMARATE DIHYDRATE
     Dosage: 60?G/4.5?G/INHALATION,60INHALATIONS/BOTTLE?1BOTTLE/BOX, UNKNOWN UNKNOWN
     Route: 055

REACTIONS (3)
  - Myocardial infarction [Unknown]
  - Incorrect dose administered by device [Unknown]
  - Device malfunction [Unknown]
